FAERS Safety Report 8997810 (Version 1)
Quarter: 2013Q1

REPORT INFORMATION
  Report Type: Spontaneous
  Country: US (occurrence: US)
  Receive Date: 20130104
  Receipt Date: 20130104
  Transmission Date: 20140127
  Serious: Yes (Death, Hospitalization)
  Sender: FDA-Public Use
  Company Number: US-GLAXOSMITHKLINE-A0848909A

PATIENT
  Sex: Male

DRUGS (2)
  1. AVANDIA [Suspect]
     Indication: DIABETES MELLITUS
     Dosage: 4MG TWICE PER DAY
     Route: 048
     Dates: start: 2002, end: 20040813
  2. ACTOS [Concomitant]
     Dates: start: 20040813, end: 20041025

REACTIONS (4)
  - Death [Fatal]
  - Coronary artery bypass [Unknown]
  - Atrial fibrillation [Unknown]
  - Cardiac failure congestive [Unknown]
